FAERS Safety Report 8701200 (Version 2)
Quarter: 2012Q4

REPORT INFORMATION
  Report Type: 
  Country: US (occurrence: US)
  Receive Date: 20120802
  Receipt Date: 20120928
  Transmission Date: 20130627
  Serious: Yes (Hospitalization)
  Sender: FDA-Public Use
  Company Number: US-AMGEN-USASP2012042886

PATIENT
  Age: 69 Year
  Sex: Female

DRUGS (21)
  1. LORTAB                             /00607101/ [Concomitant]
     Dosage: 7.5 mg, UNK, 1 tab every 4 hours as needed, RPT
     Route: 048
  2. TACLONEX [Concomitant]
     Dosage: 0.005 UNK, UNK
  3. MOBIC [Concomitant]
     Dosage: 7.5 mg, qd, RPT
     Route: 048
  4. NABUMETONE [Concomitant]
     Dosage: 750 mg, UNK, RPT
     Route: 048
  5. KETOCONAZOLE [Concomitant]
     Dosage: UNK UNK, qd for 7 days,
     Route: 048
  6. BETAMETHASONE DIPROPIONATE [Concomitant]
     Dosage: UNK
  7. TRIAMCINOLONE ACETONIDE [Concomitant]
     Dosage: UNK
  8. NYSTATIN [Concomitant]
     Dosage: 100000 unit, UNK
  9. SORILUX [Concomitant]
     Dosage: UNK
  10. METHOTREXATE [Concomitant]
     Dosage: UNK
  11. VECTICAL [Concomitant]
     Dosage: UNK
  12. ENBREL [Suspect]
     Indication: PSORIASIS
     Dosage: 50 mg, 2 times/wk
     Route: 030
     Dates: start: 20120619
  13. CYMBALTA [Concomitant]
     Dosage: UNK, RPT
  14. CALTRATE                           /00944201/ [Concomitant]
     Dosage: 600 UNK, UNK,RPT
  15. OMEGA-3                            /01866101/ [Concomitant]
     Dosage: UNK, RPT
  16. TYLENOL /00020001/ [Concomitant]
     Dosage: UNK, RPT
  17. ALEVE [Concomitant]
     Dosage: UNK, RPT
  18. ATENOLOL [Concomitant]
     Dosage: 100 mg, UNK, RPT
     Route: 048
  19. AMLODIPINE BESYLATE AND BENAZEPRIL HCL [Concomitant]
     Dosage: UNK, RPT
  20. PRISTIQ [Concomitant]
     Dosage: 100 mg, UNK, RPT
     Route: 048
  21. METFORMIN HCL [Concomitant]
     Dosage: 500 mg, UNK, RPT
     Route: 048

REACTIONS (18)
  - Hypoaesthesia [Recovered/Resolved]
  - Chest pain [Recovered/Resolved]
  - Musculoskeletal pain [Recovered/Resolved]
  - Dyspnoea [Recovered/Resolved]
  - Drug effect incomplete [Not Recovered/Not Resolved]
  - Arthralgia [Not Recovered/Not Resolved]
  - Pain in extremity [Not Recovered/Not Resolved]
  - Joint stiffness [Not Recovered/Not Resolved]
  - Musculoskeletal stiffness [Not Recovered/Not Resolved]
  - Back pain [Not Recovered/Not Resolved]
  - Contusion [Not Recovered/Not Resolved]
  - Haemorrhage [Not Recovered/Not Resolved]
  - Gait disturbance [Not Recovered/Not Resolved]
  - Skin ulcer [Unknown]
  - Staphylococcus test positive [Unknown]
  - Skin irritation [Unknown]
  - Myalgia [Unknown]
  - Psoriasis [Unknown]
